FAERS Safety Report 9826442 (Version 1)
Quarter: 2014Q1

REPORT INFORMATION
  Report Type: Spontaneous
  Country: US (occurrence: US)
  Receive Date: 20140117
  Receipt Date: 20140117
  Transmission Date: 20141002
  Serious: No
  Sender: FDA-Public Use
  Company Number: US-BIOGENIDEC-2014BI002668

PATIENT
  Age: 64 Year
  Sex: Male

DRUGS (6)
  1. TECFIDERA [Suspect]
     Indication: MULTIPLE SCLEROSIS
     Route: 048
     Dates: start: 20131204
  2. FLOMAX [Concomitant]
  3. BACIOFEN [Concomitant]
  4. ENABLEX [Concomitant]
  5. NEURONTIN [Concomitant]
  6. AUGMENTIN [Concomitant]

REACTIONS (1)
  - Abdominal distension [Recovered/Resolved]
